FAERS Safety Report 8875998 (Version 1)
Quarter: 2012Q4

REPORT INFORMATION
  Report Type: 
  Country: AU (occurrence: AU)
  Receive Date: 20121030
  Receipt Date: 20121030
  Transmission Date: 20130627
  Serious: Yes (Hospitalization)
  Sender: FDA-Public Use
  Company Number: PHHY2012AU096210

PATIENT
  Age: 40 Year
  Sex: Female

DRUGS (3)
  1. METHADONE [Suspect]
     Indication: ABDOMINAL PAIN
     Dosage: 280 mg, UNK
     Route: 048
  2. TRAMADOL [Suspect]
     Indication: ABDOMINAL PAIN
  3. LAXATIVES [Concomitant]

REACTIONS (4)
  - Narcotic bowel syndrome [Recovered/Resolved]
  - Constipation [Recovered/Resolved]
  - Abdominal pain [Recovered/Resolved]
  - Abdominal distension [Recovered/Resolved]
